FAERS Safety Report 12925065 (Version 1)
Quarter: 2016Q4

REPORT INFORMATION
  Report Type: Spontaneous
  Country: US (occurrence: US)
  Receive Date: 20161108
  Receipt Date: 20161108
  Transmission Date: 20170207
  Serious: Yes (Other)
  Sender: FDA-Public Use
  Company Number: US-ELI_LILLY_AND_COMPANY-US201610010711

PATIENT
  Sex: Male

DRUGS (1)
  1. ADCIRCA [Suspect]
     Active Substance: TADALAFIL
     Indication: PULMONARY ARTERIAL HYPERTENSION
     Dosage: 40 MG, QD
     Route: 065

REACTIONS (7)
  - Palpitations [Unknown]
  - Fatigue [Unknown]
  - Underdose [Unknown]
  - Dizziness [Unknown]
  - Hepatitis C [Not Recovered/Not Resolved]
  - Presyncope [Unknown]
  - Dyspnoea exertional [Unknown]
